FAERS Safety Report 9885966 (Version 1)
Quarter: 2014Q1

REPORT INFORMATION
  Report Type: Spontaneous
  Country: ES (occurrence: ES)
  Receive Date: 20140210
  Receipt Date: 20140210
  Transmission Date: 20141002
  Serious: Yes (Other)
  Sender: FDA-Public Use
  Company Number: ES-GLAXOSMITHKLINE-B0877412A

PATIENT
  Age: 68 Year
  Sex: Male

DRUGS (6)
  1. VOTRIENT [Suspect]
     Indication: RENAL CANCER METASTATIC
     Dosage: 800MG PER DAY
     Route: 048
     Dates: start: 20130116, end: 20130307
  2. PAROXETINE [Concomitant]
     Route: 065
  3. ALLOPURINOL [Concomitant]
     Dosage: .5TAB PER DAY
     Route: 065
  4. PERMIXON [Concomitant]
     Route: 065
  5. FLUOXETINE [Concomitant]
  6. RADIOTHERAPY [Concomitant]
     Dates: start: 20121126, end: 20121211

REACTIONS (9)
  - Neutropenia [Unknown]
  - Ejection fraction decreased [Not Recovered/Not Resolved]
  - Bone pain [Unknown]
  - Asthenia [Not Recovered/Not Resolved]
  - Hypertension [Unknown]
  - Thrombocytopenia [Unknown]
  - Blood thyroid stimulating hormone increased [Unknown]
  - Quality of life decreased [Unknown]
  - Pulmonary mass [Unknown]
